FAERS Safety Report 10421032 (Version 1)
Quarter: 2014Q3

REPORT INFORMATION
  Report Type: Spontaneous
  Country: IT (occurrence: None)
  Receive Date: 20140828
  Receipt Date: 20140828
  Transmission Date: 20150326
  Serious: Yes (Hospitalization)
  Sender: FDA-Public Use
  Company Number: FK201403400

PATIENT
  Age: 60 Year
  Sex: Female

DRUGS (4)
  1. TRASTUZUMAB [Concomitant]
     Active Substance: TRASTUZUMAB
  2. CAPECITABINE [Concomitant]
     Active Substance: CAPECITABINE
  3. OXALIPLATIN (MANUFACTURER UNKNOWN) (OXALIPLATIN) (OXALIPLATIN) [Suspect]
     Active Substance: OXALIPLATIN
     Indication: ADENOCARCINOMA GASTRIC
     Dosage: 01/-/2012 - STOPPED
     Dates: start: 201201
  4. CISPLATIN. [Concomitant]
     Active Substance: CISPLATIN

REACTIONS (5)
  - Laryngospasm [None]
  - Dysphonia [None]
  - Disease progression [None]
  - Diarrhoea [None]
  - Blood creatinine increased [None]
